FAERS Safety Report 15563429 (Version 1)
Quarter: 2018Q4

REPORT INFORMATION
  Report Type: Spontaneous
  Country: JP (occurrence: JP)
  Receive Date: 20181029
  Receipt Date: 20181029
  Transmission Date: 20190205
  Serious: Yes (Hospitalization, Other)
  Sender: FDA-Public Use
  Company Number: JP-MYLANLABS-2018M1079501

PATIENT
  Age: 31 Year
  Sex: Female

DRUGS (9)
  1. PREDNISOLONE. [Suspect]
     Active Substance: PREDNISOLONE
     Route: 065
  2. MERCAPTOPURINE. [Suspect]
     Active Substance: MERCAPTOPURINE
     Indication: CROHN^S DISEASE
     Route: 065
  3. INFLIXIMAB [Suspect]
     Active Substance: INFLIXIMAB
     Dosage: FROM OCTOBER 2015 MULTIPLE DOSE ADMINISTRATION OF IFX WAS RESUMED
     Route: 065
     Dates: start: 2002, end: 201512
  4. PREDNISOLONE. [Suspect]
     Active Substance: PREDNISOLONE
     Indication: CROHN^S DISEASE
     Route: 065
  5. ADALIMUMAB [Suspect]
     Active Substance: ADALIMUMAB
     Indication: CROHN^S DISEASE
     Route: 065
  6. PREDNISOLONE. [Suspect]
     Active Substance: PREDNISOLONE
     Dosage: DOSE DECREASED
     Route: 065
  7. MESALAZINE [Concomitant]
     Active Substance: MESALAMINE
     Indication: CROHN^S DISEASE
     Route: 065
  8. INFLIXIMAB [Suspect]
     Active Substance: INFLIXIMAB
     Indication: CROHN^S DISEASE
     Route: 065
     Dates: start: 2002, end: 201512
  9. INFLIXIMAB [Suspect]
     Active Substance: INFLIXIMAB
     Dosage: MULTIPLE DOSE ADMINISTRATION OF INFLIXIMAB WERE CARRIED OUT FROM 2012.
     Route: 065
     Dates: start: 2002, end: 201512

REACTIONS (9)
  - Pleural effusion [Recovering/Resolving]
  - Liver abscess [Recovering/Resolving]
  - Septic shock [Recovering/Resolving]
  - Ascites [Recovering/Resolving]
  - Anaemia [Recovering/Resolving]
  - Blood pressure systolic decreased [Recovering/Resolving]
  - Streptococcal infection [Recovering/Resolving]
  - Blood albumin decreased [Recovering/Resolving]
  - Empyema [Recovering/Resolving]
